FAERS Safety Report 22222823 (Version 1)
Quarter: 2023Q2

REPORT INFORMATION
  Report Type: Spontaneous
  Country: US (occurrence: None)
  Receive Date: 20230417
  Receipt Date: 20230417
  Transmission Date: 20230722
  Serious: Yes (Other)
  Sender: FDA-Public Use
  Company Number: None

PATIENT
  Age: 83 Year
  Sex: Female
  Weight: 71.1 kg

DRUGS (6)
  1. AMLODIPINE BESYLATE [Suspect]
     Active Substance: AMLODIPINE BESYLATE
     Indication: Hypertension
     Dosage: OTHER QUANTITY : 1 TABLET(S);?FREQUENCY : DAILY;?
     Route: 048
     Dates: start: 20230404, end: 20230414
  2. Synthroid 88 mcg daily [Concomitant]
  3. Phenergan 25 mg prn for sleep [Concomitant]
  4. Azelex Cream 1x a day clobetasol oint. 1x week [Concomitant]
  5. EnteraGam 5gm pkt.Prn Rx food prod Amoxicillin 1hour prior to Dental w [Concomitant]
  6. ibuprofen prn [Concomitant]

REACTIONS (6)
  - Abdominal pain [None]
  - Nausea [None]
  - Diarrhoea [None]
  - Vomiting [None]
  - Hyperhidrosis [None]
  - Asthenia [None]

NARRATIVE: CASE EVENT DATE: 20230404
